FAERS Safety Report 20082580 (Version 1)
Quarter: 2021Q4

REPORT INFORMATION
  Report Type: Spontaneous
  Country: US (occurrence: US)
  Receive Date: 20211117
  Receipt Date: 20211117
  Transmission Date: 20220303
  Serious: No
  Sender: FDA-Public Use
  Company Number: US-Fresenius Medical Care Renal Therapies Group-FMC-2109-001462

PATIENT
  Sex: Female

DRUGS (2)
  1. DELFLEX WITH DEXTROSE 1.5% LOW MAGNESIUM LOW CALCIUM [Suspect]
     Active Substance: CALCIUM CHLORIDE\DEXTROSE\MAGNESIUM CHLORIDE\SODIUM CHLORIDE\SODIUM LACTATE
     Indication: End stage renal disease
     Dosage: TIDAL TX BASED; PAUSES 0; PAUSE VOLUME 0 ML; FILLS 4; FIRST FILL VOLUME 2500ML; TIDAL FILL VOLUME 20
     Route: 033
  2. DELFLEX WITH DEXTROSE 2.5% LOW MAGNESIUM LOW CALCIUM [Suspect]
     Active Substance: CALCIUM CHLORIDE\DEXTROSE\MAGNESIUM CHLORIDE\SODIUM CHLORIDE\SODIUM LACTATE
     Indication: End stage renal disease
     Dosage: TIDAL TX BASED; PAUSES 0; PAUSE VOLUME 0 ML; FILLS 4; FIRST FILL VOLUME 2500ML; TIDAL FILL VOLUME 20
     Route: 033

REACTIONS (2)
  - Weight increased [Unknown]
  - Constipation [Unknown]
